FAERS Safety Report 6861318-6 (Version None)
Quarter: 2010Q3

REPORT INFORMATION
  Report Type: 
  Country: None (occurrence: None)
  Receive Date: 20100720
  Receipt Date: 20100709
  Transmission Date: 20110219
  Serious: Yes (Hospitalization, Other)
  Sender: FDA-Public Use
  Company Number: FI-ABBOTT-09P-055-0614738-00

PATIENT
  Sex: Male

DRUGS (1)
  1. HUMIRA [Suspect]
     Indication: PSORIASIS
     Route: 058
     Dates: start: 20080221, end: 20091001

REACTIONS (19)
  - ARTHRALGIA [None]
  - DYSPNOEA EXERTIONAL [None]
  - EXERCISE TOLERANCE DECREASED [None]
  - FATIGUE [None]
  - GAIT DISTURBANCE [None]
  - HEPATIC ENZYME INCREASED [None]
  - HYPOXIA [None]
  - MALAISE [None]
  - MYALGIA [None]
  - NASOPHARYNGITIS [None]
  - NAUSEA [None]
  - OXYGEN SATURATION DECREASED [None]
  - PSORIASIS [None]
  - PYREXIA [None]
  - RASH PAPULAR [None]
  - RHINITIS [None]
  - TENDON PAIN [None]
  - TUBERCULOSIS [None]
  - VOMITING [None]
